FAERS Safety Report 4775342-0 (Version None)
Quarter: 2005Q3

REPORT INFORMATION
  Report Type: 
  Country: None (occurrence: None)
  Receive Date: 20050922
  Receipt Date: 20050907
  Transmission Date: 20060218
  Serious: Yes (Hospitalization)
  Sender: FDA-Public Use
  Company Number: DE-BOEHRINGER INGELHEIM PHARMACEUTICALS, INC.-2005-DE-03662DE

PATIENT
  Sex: Female

DRUGS (10)
  1. MICARDIS HCT [Suspect]
     Indication: ESSENTIAL HYPERTENSION
     Dosage: STRENGTH: 80 MG TELMISARTAN, 12,5 MG HCT
     Dates: start: 20030901
  2. ASPIRIN [Concomitant]
     Dosage: ALL 2 DAYS 1 TABLET
  3. DILATREND [Concomitant]
  4. L-THYROXIN [Concomitant]
  5. SORTIS [Concomitant]
  6. AMARYL [Concomitant]
  7. UNAT [Concomitant]
  8. CLONIDIN [Concomitant]
  9. INSIDON [Concomitant]
  10. IMAP [Concomitant]
     Dosage: 0,6 MG PER WEEK

REACTIONS (3)
  - DRY MOUTH [None]
  - HEADACHE [None]
  - SLEEP APNOEA SYNDROME [None]
